FAERS Safety Report 17004943 (Version 1)
Quarter: 2019Q4

REPORT INFORMATION
  Report Type: Spontaneous
  Country: US (occurrence: US)
  Receive Date: 20190926
  Receipt Date: 20190926
  Transmission Date: 20200122
  Serious: No
  Sender: FDA-Public Use
  Company Number: None

PATIENT

DRUGS (2)
  1. ESCITALOPRAM OXALATE. [Suspect]
     Active Substance: ESCITALOPRAM OXALATE
  2. ESTRADIOL. [Suspect]
     Active Substance: ESTRADIOL

REACTIONS (6)
  - Dyspnoea [None]
  - Stress [None]
  - Product dispensing error [None]
  - Wrong product administered [None]
  - Dizziness [None]
  - Anxiety [None]

NARRATIVE: CASE EVENT DATE: 2019
